FAERS Safety Report 15437393 (Version 1)
Quarter: 2018Q3

REPORT INFORMATION
  Report Type: Spontaneous
  Country: US (occurrence: US)
  Receive Date: 20180927
  Receipt Date: 20180927
  Transmission Date: 20181010
  Serious: No
  Sender: FDA-Public Use
  Company Number: US-AMGEN-USASP2018089864

PATIENT
  Age: 63 Year
  Sex: Female

DRUGS (9)
  1. TAXOTERE [Concomitant]
     Active Substance: DOCETAXEL
     Indication: METASTASES TO BONE
  2. NEULASTA [Suspect]
     Active Substance: PEGFILGRASTIM
     Indication: NON-SMALL CELL LUNG CANCER METASTATIC
     Dosage: UNK
     Route: 065
  3. NEULASTA [Suspect]
     Active Substance: PEGFILGRASTIM
     Indication: METASTASES TO LIVER
  4. XGEVA [Suspect]
     Active Substance: DENOSUMAB
     Indication: NON-SMALL CELL LUNG CANCER METASTATIC
     Dosage: UNK
     Route: 065
  5. TAXOTERE [Concomitant]
     Active Substance: DOCETAXEL
     Indication: METASTASES TO LIVER
  6. NEULASTA [Suspect]
     Active Substance: PEGFILGRASTIM
     Indication: METASTASES TO BONE
  7. XGEVA [Suspect]
     Active Substance: DENOSUMAB
     Indication: METASTASES TO LIVER
  8. XGEVA [Suspect]
     Active Substance: DENOSUMAB
     Indication: METASTASES TO BONE
  9. TAXOTERE [Concomitant]
     Active Substance: DOCETAXEL
     Indication: NON-SMALL CELL LUNG CANCER METASTATIC
     Dosage: UNK (SINGLE DOSE)
     Dates: start: 20180622

REACTIONS (4)
  - Blood lactate dehydrogenase abnormal [Not Recovered/Not Resolved]
  - Neutrophil count abnormal [Not Recovered/Not Resolved]
  - Heart rate increased [Not Recovered/Not Resolved]
  - Hypotension [Not Recovered/Not Resolved]

NARRATIVE: CASE EVENT DATE: 20180629
